FAERS Safety Report 9769338 (Version 1)
Quarter: 2013Q4

REPORT INFORMATION
  Report Type: Spontaneous
  Country: US (occurrence: US)
  Receive Date: 20131218
  Receipt Date: 20131218
  Transmission Date: 20140711
  Serious: No
  Sender: FDA-Public Use
  Company Number: US-009507513-1311USA010207

PATIENT
  Sex: Female

DRUGS (2)
  1. AZASITE [Suspect]
     Indication: MEIBOMIAN GLAND DYSFUNCTION
     Dosage: ONE DROP IN BOTH EYES AT BEDTIME
     Route: 047
  2. AZASITE [Suspect]
     Indication: CHALAZION

REACTIONS (4)
  - Lacrimation increased [Not Recovered/Not Resolved]
  - Chalazion [Not Recovered/Not Resolved]
  - Drug dose omission [Unknown]
  - Inappropriate schedule of drug administration [Unknown]
